FAERS Safety Report 9629833 (Version 4)
Quarter: 2014Q2

REPORT INFORMATION
  Report Type: Spontaneous
  Country: JP (occurrence: JP)
  Receive Date: 20131017
  Receipt Date: 20140402
  Transmission Date: 20141212
  Serious: Yes (Hospitalization, Other)
  Sender: FDA-Public Use
  Company Number: JP-BAXTER-2013BAX038710

PATIENT
  Age: 53 Year
  Sex: Male
  Weight: 83 kg

DRUGS (13)
  1. SUPRANE [Suspect]
     Indication: ANAESTHETIC PREMEDICATION
     Route: 055
     Dates: start: 20131001, end: 20131001
  2. SUPRANE [Suspect]
     Indication: SPINAL FUSION SURGERY
  3. EPHEDRIN [Suspect]
     Indication: ANAESTHETIC COMPLICATION VASCULAR
     Route: 065
     Dates: start: 20131001, end: 20131001
  4. ROPION [Suspect]
     Indication: ANALGESIC THERAPY
     Route: 065
  5. BRIDION [Suspect]
     Indication: ANAESTHESIA REVERSAL
     Route: 065
     Dates: start: 20131001, end: 20131001
  6. ATROPINE [Suspect]
     Indication: ANAESTHETIC PREMEDICATION
     Route: 065
     Dates: start: 20131001, end: 20131001
  7. DIPRIVAN [Suspect]
     Indication: INDUCTION OF ANAESTHESIA
     Route: 065
     Dates: start: 20131001, end: 20131001
  8. ULTIVA [Suspect]
     Indication: ANALGESIC THERAPY
     Route: 065
     Dates: start: 20131001
  9. FENTANYL [Suspect]
     Indication: ANALGESIC THERAPY
     Route: 065
     Dates: start: 20131001
  10. ESLAX [Suspect]
     Indication: MUSCLE RELAXANT THERAPY
     Route: 065
     Dates: start: 20131001, end: 20131001
  11. DROLEPTAN [Concomitant]
     Indication: ANTIEMETIC SUPPORTIVE CARE
     Route: 065
     Dates: start: 20131001, end: 20131001
  12. PONTAL [Concomitant]
     Indication: PRODUCT USED FOR UNKNOWN INDICATION
     Route: 048
  13. CEFOTIAM [Concomitant]
     Indication: SURGERY
     Dates: start: 20131001

REACTIONS (6)
  - Postictal paralysis [Recovered/Resolved]
  - Convulsion [Recovered/Resolved]
  - Tachycardia [Recovered/Resolved]
  - Blood pressure increased [Recovered/Resolved]
  - Restlessness [Recovered/Resolved]
  - Anaesthetic complication [Recovered/Resolved]
